FAERS Safety Report 12783262 (Version 13)
Quarter: 2019Q3

REPORT INFORMATION
  Report Type: Report from Study
  Country: DE (occurrence: DE)
  Receive Date: 20160927
  Receipt Date: 20190809
  Transmission Date: 20191004
  Serious: Yes (Hospitalization, Other)
  Sender: FDA-Public Use
  Company Number: PHHY2016DE131483

PATIENT
  Sex: Female
  Weight: 65 kg

DRUGS (8)
  1. ASS-RATIOPHARM TAH [Concomitant]
     Indication: PERIPHERAL VASCULAR DISORDER
     Dosage: 50 MG, QD
     Route: 048
     Dates: start: 1990
  2. VOTRIENT [Suspect]
     Active Substance: PAZOPANIB HYDROCHLORIDE
     Dosage: 200 MG, QD
     Route: 048
     Dates: start: 20161109, end: 20161125
  3. VOTRIENT [Suspect]
     Active Substance: PAZOPANIB HYDROCHLORIDE
     Indication: METASTATIC RENAL CELL CARCINOMA
     Dosage: 800 MG, QD
     Route: 048
     Dates: start: 20160721, end: 20160906
  4. HYDROMORPHON RATIOPHARM [Concomitant]
     Indication: TUMOUR PAIN
     Dosage: 1.3 MG, PRN
     Route: 048
     Dates: start: 20170130
  5. PANTOPRAZOLE [Concomitant]
     Active Substance: PANTOPRAZOLE
     Indication: TUMOUR PAIN
     Dosage: 40 MG, QD
     Dates: start: 201609
  6. DUROGESIC [Concomitant]
     Active Substance: FENTANYL
     Dosage: 25 MG, EVERY THIRD DAY
     Route: 061
     Dates: start: 20161108
  7. DUROGESIC [Concomitant]
     Active Substance: FENTANYL
     Indication: TUMOUR PAIN
     Dosage: 12.5 MG, EVERY THIRD DAY
     Route: 061
     Dates: start: 201509, end: 20161107
  8. TRAMAL [Concomitant]
     Active Substance: TRAMADOL
     Indication: TUMOUR PAIN
     Dosage: 2 ML, PRN
     Route: 048
     Dates: start: 20161208

REACTIONS (6)
  - Hepatic enzyme increased [Unknown]
  - Duodenal ulcer [Recovered/Resolved]
  - Gamma-glutamyltransferase increased [Recovering/Resolving]
  - Jaundice [Unknown]
  - Blood alkaline phosphatase increased [Recovering/Resolving]
  - Hepatitis cholestatic [Recovering/Resolving]

NARRATIVE: CASE EVENT DATE: 20160906
